FAERS Safety Report 4263661-6 (Version None)
Quarter: 2004Q1

REPORT INFORMATION
  Report Type: 
  Country: None (occurrence: None)
  Receive Date: 20040102
  Receipt Date: 20031209
  Transmission Date: 20041129
  Serious: Yes (Other)
  Sender: FDA-Public Use
  Company Number: USA031254318

PATIENT
  Age: 77 Year
  Sex: Female

DRUGS (11)
  1. FORTEO [Suspect]
     Indication: OSTEOPOROSIS
     Dates: start: 20031107, end: 20031203
  2. PRINIVIL [Concomitant]
  3. HYDROCHLOROTHIAZIDE [Concomitant]
  4. VITAMIN C [Concomitant]
  5. VITAMIN E [Concomitant]
  6. CITRACAL (CALCIUM CITRATE) [Concomitant]
  7. PLAVIX [Concomitant]
  8. ASPIRIN [Concomitant]
  9. ATENOLOL [Concomitant]
  10. FOLIC ACID [Concomitant]
  11. TRIMETHOPRIM [Concomitant]

REACTIONS (7)
  - ABASIA [None]
  - GAIT DISTURBANCE [None]
  - MOBILITY DECREASED [None]
  - MUSCLE CRAMP [None]
  - MUSCULAR WEAKNESS [None]
  - MYALGIA [None]
  - PAIN [None]
